FAERS Safety Report 6337444-7 (Version None)
Quarter: 2009Q3

REPORT INFORMATION
  Report Type: 
  Country: None (occurrence: None)
  Receive Date: 20090902
  Receipt Date: 20090826
  Transmission Date: 20100115
  Serious: Yes (Other)
  Sender: FDA-Public Use
  Company Number: US-CELGENEUS-163-21880-09081993

PATIENT
  Sex: Female

DRUGS (3)
  1. REVLIMID [Suspect]
     Route: 048
     Dates: start: 20090601
  2. REVLIMID [Suspect]
     Route: 048
     Dates: start: 20060501
  3. REVLIMID [Suspect]
     Route: 048
     Dates: start: 20080701

REACTIONS (1)
  - ARTHROPATHY [None]
